FAERS Safety Report 4504584-4 (Version None)
Quarter: 2005Q1

REPORT INFORMATION
  Report Type: 
  Country: None (occurrence: None)
  Receive Date: 20041116
  Receipt Date: 20041102
  Transmission Date: 20050727
  Serious: No
  Sender: FDA-Public Use
  Company Number: 02100-JPN-04-0303

PATIENT
  Age: 64 Year
  Sex: Male

DRUGS (12)
  1. CILOSTAZOL [Suspect]
     Indication: CEREBRAL INFARCTION
     Dosage: 200 MG, ORAL
     Route: 048
     Dates: start: 20041005, end: 20041013
  2. CILOSTAZOL [Suspect]
     Indication: CEREBRAL INFARCTION
     Dosage: 200 MG, ORAL
     Route: 048
     Dates: start: 20041020, end: 20041030
  3. MILNACIPRAN HYDROCHLORIDE [Suspect]
     Indication: PSYCHOSOMATIC DISEASE
     Dosage: 2 DF, ORAL
     Route: 048
     Dates: start: 20041028, end: 20041030
  4. ALPRAZOLAM [Concomitant]
  5. FURSULTIAMINE [Concomitant]
  6. KALLIDINOGENASE [Concomitant]
  7. BIODIASTASE [Concomitant]
  8. MECOBALAMIN [Concomitant]
  9. NICARDIPINE HYDROCHLORIDE [Concomitant]
  10. ALACEPRIL [Concomitant]
  11. CHLORPROMAZINE HYDROCHLORIDE [Concomitant]
  12. HALOPERIDOL [Concomitant]

REACTIONS (5)
  - ALANINE AMINOTRANSFERASE INCREASED [None]
  - ASPARTATE AMINOTRANSFERASE INCREASED [None]
  - BLOOD TEST ABNORMAL [None]
  - JAUNDICE [None]
  - LIVER DISORDER [None]
